FAERS Safety Report 4547370-1 (Version None)
Quarter: 2005Q1

REPORT INFORMATION
  Report Type: 
  Country: None (occurrence: None)
  Receive Date: 20050107
  Receipt Date: 20041230
  Transmission Date: 20050727
  Serious: Yes (Hospitalization, Disabling, Other)
  Sender: FDA-Public Use
  Company Number: US-GLAXOSMITHKLINE-A0538803A

PATIENT
  Age: 48 Year
  Sex: Male
  Weight: 99.1 kg

DRUGS (6)
  1. AQUAFRESH SENSITIVE MAXIMUM STRENGTH TOOTHPASTE TUBE [Suspect]
     Indication: SENSITIVITY OF TEETH
     Dates: start: 20020101
  2. CARDURA [Concomitant]
     Indication: HYPERTENSION
     Route: 048
  3. PROTONIX [Concomitant]
     Indication: DYSPEPSIA
     Route: 048
  4. NEURONTIN [Concomitant]
     Indication: NEURALGIA
     Route: 048
  5. PAXIL [Concomitant]
     Indication: OBSESSIVE-COMPULSIVE DISORDER
     Route: 048
  6. XANAX [Concomitant]
     Indication: ANXIETY
     Route: 048

REACTIONS (11)
  - ASTHENIA [None]
  - BACK PAIN [None]
  - EATING DISORDER [None]
  - FATIGUE [None]
  - INTERVERTEBRAL DISC PROTRUSION [None]
  - PARKINSON'S DISEASE [None]
  - SCOLIOSIS [None]
  - SURGERY [None]
  - TREMOR [None]
  - WALKING AID USER [None]
  - WHEELCHAIR USER [None]
